FAERS Safety Report 5308813-9 (Version None)
Quarter: 2007Q2

REPORT INFORMATION
  Report Type: 
  Country: None (occurrence: None)
  Receive Date: 20070426
  Receipt Date: 20070416
  Transmission Date: 20071010
  Serious: Yes (Other)
  Sender: FDA-Public Use
  Company Number: US-PFIZER INC-2007030308

PATIENT
  Sex: Female
  Weight: 49.09 kg

DRUGS (7)
  1. CELEBREX [Suspect]
     Indication: OSTEOARTHRITIS
  2. CHANTIX [Suspect]
     Indication: EX-SMOKER
     Dates: start: 20070306
  3. DOXYCYCLINE [Suspect]
     Indication: PNEUMONIA
  4. TAMOXIFEN CITRATE [Suspect]
     Indication: MASTECTOMY
     Dates: start: 19960101
  5. OXYCODONE HCL [Concomitant]
  6. DIAZEPAM [Concomitant]
  7. AMBIEN [Concomitant]

REACTIONS (7)
  - CHRONIC OBSTRUCTIVE PULMONARY DISEASE [None]
  - CONFUSIONAL STATE [None]
  - MALAISE [None]
  - MASTECTOMY [None]
  - OSTEOPOROSIS [None]
  - PNEUMONIA [None]
  - URINARY TRACT INFECTION [None]
